FAERS Safety Report 23376729 (Version 2)
Quarter: 2024Q1

REPORT INFORMATION
  Report Type: Report from Study
  Country: AE (occurrence: AE)
  Receive Date: 20240108
  Receipt Date: 20240110
  Transmission Date: 20240410
  Serious: Yes (Hospitalization)
  Sender: FDA-Public Use
  Company Number: AE-ABBVIE-5574898

PATIENT
  Age: 49 Year
  Sex: Male

DRUGS (2)
  1. CARBIDOPA\LEVODOPA [Suspect]
     Active Substance: CARBIDOPA\LEVODOPA
     Indication: Parkinson^s disease
     Dosage: MORNING DOSE: 11ML, CONTINUOUS RATE: 5.8 ML, EXTRA DOSE: 1ML
     Route: 050
     Dates: start: 20240106
  2. CARBIDOPA\LEVODOPA [Suspect]
     Active Substance: CARBIDOPA\LEVODOPA
     Dosage: MORNING DOSE: 13ML, CONTINUOUS RATE: 7.2ML, EXTRA DOSE: 1ML
     Route: 050
     Dates: start: 20220124, end: 20240105

REACTIONS (4)
  - Impulsive behaviour [Recovered/Resolved]
  - Hallucination [Recovered/Resolved]
  - Cognitive disorder [Recovered/Resolved]
  - On and off phenomenon [Unknown]

NARRATIVE: CASE EVENT DATE: 20231201
